FAERS Safety Report 25744962 (Version 6)
Quarter: 2025Q4

REPORT INFORMATION
  Report Type: Report from Study
  Country: US (occurrence: US)
  Receive Date: 20250901
  Receipt Date: 20251231
  Transmission Date: 20260117
  Serious: No
  Sender: DECIPHERA PHARMACEUTICALS
  Company Number: US-DECIPHERA PHARMACEUTICALS LLC-2025US001023

PATIENT
  Age: 37 Year
  Sex: Female
  Weight: 106.48 kg

DRUGS (3)
  1. ROMVIMZA [Suspect]
     Active Substance: VIMSELTINIB
     Indication: Synovitis
     Dosage: 30 MILLIGRAM, TWICE WEEKLY, 72 HOURS APART (MONDAY AND THURSDAY))
     Route: 061
     Dates: start: 20250804, end: 2025
  2. ROMVIMZA [Suspect]
     Active Substance: VIMSELTINIB
     Dosage: 20 MILLIGRAM, TWICE WEEKLY, 72 HOURS APART (MONDAY AND THURSDAY)
     Dates: start: 2025, end: 2025
  3. ROMVIMZA [Suspect]
     Active Substance: VIMSELTINIB
     Dosage: 20 MILLIGRAM, TWICE WEEKLY, 72 HOURS APART (MONDAY AND THURSDAY)
     Dates: start: 2025

REACTIONS (6)
  - Nausea [Unknown]
  - Brain fog [Unknown]
  - Nasopharyngitis [Recovering/Resolving]
  - Tumour inflammation [Unknown]
  - Fatigue [Unknown]
  - Abdominal discomfort [Unknown]

NARRATIVE: CASE EVENT DATE: 20250101
